FAERS Safety Report 24628302 (Version 2)
Quarter: 2024Q4

REPORT INFORMATION
  Report Type: Spontaneous
  Country: JP (occurrence: JP)
  Receive Date: 20241117
  Receipt Date: 20241117
  Transmission Date: 20250115
  Serious: Yes (Death, Other)
  Sender: ALEXION PHARMACEUTICALS
  Company Number: JP-ASTRAZENECA-240120795_064320_P_1

PATIENT
  Age: 77 Year

DRUGS (16)
  1. ANDEXXA [Suspect]
     Active Substance: ANDEXANET ALFA
     Dosage: DOSE UNKNOWN
  2. ANDEXXA [Suspect]
     Active Substance: ANDEXANET ALFA
     Dosage: DOSE UNKNOWN
  3. ANDEXXA [Suspect]
     Active Substance: ANDEXANET ALFA
     Dosage: DOSE UNKNOWN
  4. ANDEXXA [Suspect]
     Active Substance: ANDEXANET ALFA
     Dosage: DOSE UNKNOWN
  5. ANDEXXA [Suspect]
     Active Substance: ANDEXANET ALFA
     Dosage: DOSE UNKNOWN
  6. ANDEXXA [Suspect]
     Active Substance: ANDEXANET ALFA
     Dosage: DOSE UNKNOWN
  7. ANDEXXA [Suspect]
     Active Substance: ANDEXANET ALFA
     Dosage: DOSE UNKNOWN
  8. ANDEXXA [Suspect]
     Active Substance: ANDEXANET ALFA
     Dosage: DOSE UNKNOWN
  9. ASPIRIN [Suspect]
     Active Substance: ASPIRIN
     Dosage: DOSE UNKNOWN
     Route: 065
  10. ASPIRIN [Suspect]
     Active Substance: ASPIRIN
     Dosage: DOSE UNKNOWN
  11. ASPIRIN [Suspect]
     Active Substance: ASPIRIN
     Dosage: DOSE UNKNOWN
     Route: 065
  12. ASPIRIN [Suspect]
     Active Substance: ASPIRIN
     Dosage: DOSE UNKNOWN
  13. PRASUGREL HYDROCHLORIDE [Suspect]
     Active Substance: PRASUGREL HYDROCHLORIDE
     Dosage: DOSE UNKNOWN
     Route: 065
  14. PRASUGREL HYDROCHLORIDE [Suspect]
     Active Substance: PRASUGREL HYDROCHLORIDE
     Dosage: DOSE UNKNOWN
  15. PRASUGREL HYDROCHLORIDE [Suspect]
     Active Substance: PRASUGREL HYDROCHLORIDE
     Dosage: DOSE UNKNOWN
     Route: 065
  16. PRASUGREL HYDROCHLORIDE [Suspect]
     Active Substance: PRASUGREL HYDROCHLORIDE
     Dosage: DOSE UNKNOWN

REACTIONS (1)
  - Death [Fatal]
